FAERS Safety Report 10076128 (Version 2)
Quarter: 2014Q2

REPORT INFORMATION
  Report Type: Spontaneous
  Country: FR (occurrence: FR)
  Receive Date: 20140414
  Receipt Date: 20140421
  Transmission Date: 20141212
  Serious: Yes (Life-Threatening, Hospitalization)
  Sender: FDA-Public Use
  Company Number: FR-TEVA-473665ISR

PATIENT
  Age: 66 Year
  Sex: Male

DRUGS (18)
  1. METFORMINE TEVA 850 MG [Suspect]
     Indication: TYPE 2 DIABETES MELLITUS
     Dosage: 850 MILLIGRAM DAILY;
     Dates: end: 20131125
  2. OLMETEC 40 MG [Suspect]
     Indication: HYPERTENSION
     Dosage: 40 MILLIGRAM DAILY;
     Route: 048
     Dates: start: 201309, end: 20131125
  3. PROFENID LP 100 MG [Suspect]
     Indication: PAIN
     Route: 048
     Dates: start: 20131123, end: 20131125
  4. FUROSEMIDE [Suspect]
     Indication: HYPERTENSION
     Dosage: 160 MILLIGRAM DAILY;
     Route: 048
     Dates: end: 20131125
  5. HYPERIUM 1 MG [Concomitant]
     Indication: HYPERTENSION
     Dosage: 1 MILLIGRAM DAILY;
     Dates: end: 20131125
  6. DOLIPRANE 1000 MG [Concomitant]
     Indication: PAIN
     Dosage: 1000 MILLIGRAM DAILY;
     Route: 048
     Dates: start: 20131123, end: 20131125
  7. TOPALGIC LP 100 MG [Concomitant]
     Indication: PAIN
     Dosage: 200 MILLIGRAM DAILY;
     Route: 048
     Dates: start: 20131123, end: 20131125
  8. VERAPAMIL TEVA LP 240 [Concomitant]
     Indication: HYPERTENSION
     Dosage: 240 MILLIGRAM DAILY;
     Route: 048
     Dates: end: 20131125
  9. ATORVASTATINE TEVA SANTE 40 MG [Concomitant]
     Dosage: 40 MILLIGRAM DAILY;
     Dates: end: 20131125
  10. LEVEMIR [Concomitant]
     Indication: TYPE 2 DIABETES MELLITUS
     Dosage: 48 IU (INTERNATIONAL UNIT) DAILY;
     Route: 058
     Dates: end: 20131125
  11. ALLOPURINOL TEVA 100 MG [Concomitant]
     Indication: GOUTY ARTHRITIS
     Dosage: 100 MILLIGRAM DAILY;
     Dates: end: 20131125
  12. KEFANDOL 750 MG [Concomitant]
     Dosage: 3000 MILLIGRAM DAILY;
     Route: 042
     Dates: start: 20131121, end: 20131123
  13. MORPHINE RENAUDIN 1 MG/ML [Concomitant]
     Indication: PAIN
     Dosage: 1 DOSAGE FORMS DAILY;
     Route: 042
     Dates: end: 20131123
  14. DROLEPTAN [Concomitant]
     Dosage: 5 MG/100 ML
     Route: 042
     Dates: start: 20131121, end: 20131123
  15. PERFALGAN [Concomitant]
     Indication: PAIN
     Dosage: 4 GRAM DAILY;
     Route: 042
     Dates: start: 20131121, end: 20131123
  16. LOVENOX 60 MG/0.6 ML [Concomitant]
     Dosage: 1 DOSAGE FORMS DAILY;
     Route: 058
     Dates: start: 20131121, end: 20131125
  17. REPAGLINIDE TEVA [Concomitant]
     Indication: TYPE 2 DIABETES MELLITUS
     Dosage: 2 MILLIGRAM DAILY;
     Route: 048
     Dates: end: 20131125
  18. CELIPROLOL TEVA 200 MG [Concomitant]
     Indication: HYPERTENSION
     Dosage: 200 MILLIGRAM DAILY;
     Route: 048
     Dates: end: 20131125

REACTIONS (8)
  - Lactic acidosis [Recovered/Resolved]
  - Drug level increased [Recovered/Resolved]
  - Dyspnoea [Recovered/Resolved]
  - Bradycardia [Recovered/Resolved]
  - Hypothermia [Recovered/Resolved]
  - Anuria [Recovered/Resolved]
  - Renal failure [Recovered/Resolved]
  - Gastrointestinal haemorrhage [Recovered/Resolved]
